FAERS Safety Report 20675952 (Version 3)
Quarter: 2022Q2

REPORT INFORMATION
  Report Type: Report from Study
  Country: CA (occurrence: CA)
  Receive Date: 20220405
  Receipt Date: 20220525
  Transmission Date: 20220720
  Serious: Yes (Hospitalization, Other)
  Sender: FDA-Public Use
  Company Number: CA-OTSUKA-2022_000572

PATIENT
  Age: 86 Year
  Sex: Female

DRUGS (4)
  1. CEDAZURIDINE\DECITABINE [Suspect]
     Active Substance: CEDAZURIDINE\DECITABINE
     Indication: Myelodysplastic syndrome
     Dosage: UNK, CYCLE 1
     Route: 065
     Dates: start: 20211208, end: 20220405
  2. CEDAZURIDINE\DECITABINE [Suspect]
     Active Substance: CEDAZURIDINE\DECITABINE
     Dosage: UNK, CYCLE 2
     Route: 065
     Dates: start: 20220105
  3. CEDAZURIDINE\DECITABINE [Suspect]
     Active Substance: CEDAZURIDINE\DECITABINE
     Dosage: UNK, CYCLE 3
     Route: 065
     Dates: start: 20220212
  4. CEDAZURIDINE\DECITABINE [Suspect]
     Active Substance: CEDAZURIDINE\DECITABINE
     Dosage: UNK, CYCLE 4
     Route: 065
     Dates: start: 20220316

REACTIONS (18)
  - Malaise [Unknown]
  - Syncope [Recovering/Resolving]
  - Loss of consciousness [Unknown]
  - Arthralgia [Recovered/Resolved]
  - Dyspnoea [Unknown]
  - Haemoglobin decreased [Unknown]
  - Neutropenia [Recovering/Resolving]
  - Bedridden [Unknown]
  - Feeling abnormal [Unknown]
  - Peripheral swelling [Unknown]
  - Erythema [Unknown]
  - Asthenia [Recovering/Resolving]
  - Blood sodium decreased [Recovering/Resolving]
  - Stomatitis [Not Recovered/Not Resolved]
  - Constipation [Recovered/Resolved]
  - Abdominal pain [Unknown]
  - Fatigue [Not Recovered/Not Resolved]
  - Therapy interrupted [Unknown]

NARRATIVE: CASE EVENT DATE: 20211224
